FAERS Safety Report 5205651-2 (Version None)
Quarter: 2007Q1

REPORT INFORMATION
  Report Type: 
  Country: None (occurrence: None)
  Receive Date: 20070105
  Receipt Date: 20070105
  Transmission Date: 20070707
  Serious: Yes (Hospitalization)
  Sender: FDA-Public Use
  Company Number: None

PATIENT
  Age: 49 Year
  Sex: Male
  Weight: 35.6 kg

DRUGS (4)
  1. LISINOPRIL [Suspect]
     Indication: HYPERTENSION
     Dosage: 40 MG PO DAILY
     Route: 048
     Dates: start: 20060401, end: 20060701
  2. MULTI-VITAMIN [Concomitant]
  3. FOLATE [Concomitant]
  4. METOPROLOL SUCCINATE [Concomitant]

REACTIONS (3)
  - ANGIOEDEMA [None]
  - FEELING ABNORMAL [None]
  - OBSTRUCTIVE AIRWAYS DISORDER [None]
